FAERS Safety Report 21392378 (Version 2)
Quarter: 2022Q4

REPORT INFORMATION
  Report Type: Spontaneous
  Country: US (occurrence: US)
  Receive Date: 20220929
  Receipt Date: 20221214
  Transmission Date: 20230113
  Serious: Yes (Death, Hospitalization)
  Sender: FDA-Public Use
  Company Number: US-ELI_LILLY_AND_COMPANY-US202209012334

PATIENT
  Sex: Male
  Weight: 49.44 kg

DRUGS (12)
  1. BEBTELOVIMAB [Suspect]
     Active Substance: BEBTELOVIMAB
     Indication: COVID-19
     Dosage: 175 MG, SINGLE
     Route: 042
     Dates: start: 20220913, end: 20220913
  2. ADEFOVIR [Concomitant]
     Active Substance: ADEFOVIR
     Dosage: 10 MG,EVERY 72 HOURS
     Route: 065
  3. CALCIUM CARBONATE [Concomitant]
     Active Substance: CALCIUM CARBONATE
     Dosage: 500 MG, DAILY
     Route: 065
  4. CHOLECALCIFEROL [Concomitant]
     Active Substance: CHOLECALCIFEROL
     Dosage: 400 U, DAILY
     Route: 065
  5. DENOSUMAB [Concomitant]
     Active Substance: DENOSUMAB
     Dosage: 60 MG, EVERY 6 MONTHS
     Route: 065
  6. DESMOPRESSIN [Concomitant]
     Active Substance: DESMOPRESSIN
     Dosage: 0.4 MG, BID
     Route: 065
  7. ESOMEPRAZOLE [Concomitant]
     Active Substance: ESOMEPRAZOLE
     Dosage: 20 MG, DAILY
     Route: 065
  8. POLYETHYLENE GLYCOLS [Concomitant]
     Active Substance: POLYETHYLENE GLYCOLS
     Dosage: 17 G, DAILY
     Route: 065
  9. POTASSIUM [Concomitant]
     Active Substance: POTASSIUM
     Dosage: 250 MG, TID
     Route: 065
  10. PHOSPHORUS [Concomitant]
     Active Substance: PHOSPHORUS
     Dosage: 250 MG, TID
     Route: 065
  11. SODIUM [Concomitant]
     Active Substance: SODIUM
     Dosage: 250 MG, TID
     Route: 065
  12. SENNA [SENNA ALEXANDRINA LEAF] [Concomitant]
     Dosage: 8.6 MG, DAILY
     Route: 065

REACTIONS (3)
  - COVID-19 pneumonia [Fatal]
  - Respiratory failure [Fatal]
  - Death [Fatal]
